FAERS Safety Report 11222238 (Version 1)
Quarter: 2015Q2

REPORT INFORMATION
  Report Type: Spontaneous
  Country: CH (occurrence: CH)
  Receive Date: 20150626
  Receipt Date: 20150626
  Transmission Date: 20150821
  Serious: Yes (Hospitalization, Other)
  Sender: FDA-Public Use
  Company Number: CH-BAXTER-2015BAX033629

PATIENT
  Age: 38 Year
  Sex: Male

DRUGS (3)
  1. UROMITEXAN 400 ML, L?SUNG ZUR INTRAVEN?SEN ANWENDUNG [Suspect]
     Active Substance: MESNA
     Indication: OSTEOSARCOMA
     Route: 042
     Dates: start: 20150331, end: 20150407
  2. HOLOXAN 1 G [Suspect]
     Active Substance: IFOSFAMIDE
     Indication: OSTEOSARCOMA
     Route: 042
     Dates: start: 20150331, end: 20150407
  3. ETOPOPHOS [Concomitant]
     Active Substance: ETOPOSIDE PHOSPHATE
     Indication: OSTEOSARCOMA
     Route: 042

REACTIONS (2)
  - Administration site oedema [Recovered/Resolved]
  - Catheter site extravasation [Recovered/Resolved]

NARRATIVE: CASE EVENT DATE: 20150402
